FAERS Safety Report 7544065-7 (Version None)
Quarter: 2011Q2

REPORT INFORMATION
  Report Type: 
  Country: None (occurrence: None)
  Receive Date: 20110613
  Receipt Date: 20051021
  Transmission Date: 20111010
  Serious: Yes (Hospitalization)
  Sender: FDA-Public Use
  Company Number: PHHO2005BR16758

PATIENT
  Age: 67 Year
  Sex: Male
  Weight: 78 kg

DRUGS (6)
  1. BETASERC [Concomitant]
     Indication: EAR DISORDER
     Dosage: 1 TABLET, QD
  2. ASPIRIN [Concomitant]
  3. ANCORON [Concomitant]
  4. INSULIN [Concomitant]
     Indication: DIABETES MELLITUS
     Dosage: 30 CC
  5. DIOVAN [Suspect]
     Indication: HYPERTENSION
     Dosage: 160 MG, QD
     Route: 050
  6. SINVACOR [Concomitant]
     Indication: BLOOD CHOLESTEROL INCREASED
     Dosage: 1 TABLET, QD

REACTIONS (2)
  - HYPERTENSION [None]
  - MICTURITION FREQUENCY DECREASED [None]
